FAERS Safety Report 16425941 (Version 2)
Quarter: 2019Q2

REPORT INFORMATION
  Report Type: Report from Study
  Country: MX (occurrence: MX)
  Receive Date: 20190613
  Receipt Date: 20190627
  Transmission Date: 20190711
  Serious: Yes (Hospitalization, Other)
  Sender: FDA-Public Use
  Company Number: PHHY2014MX034685

PATIENT
  Sex: Female
  Weight: 75 kg

DRUGS (3)
  1. CO-DIOVAN [Suspect]
     Active Substance: HYDROCHLOROTHIAZIDE\VALSARTAN
     Indication: HYPERTENSION
     Dosage: 1 DF, Q12H (HYDROCHLOROTHIAZIDE 12.5 MG VALSARTAN 80 MG)
     Route: 048
  2. ANGIOTROFIN [Concomitant]
     Active Substance: DILTIAZEM HYDROCHLORIDE
     Indication: PRODUCT USED FOR UNKNOWN INDICATION
     Dosage: 1 DF, QD (11 YEARS AGO)
     Route: 048
  3. ASPIRIN PROTECT [Concomitant]
     Active Substance: ASPIRIN
     Indication: PRODUCT USED FOR UNKNOWN INDICATION
     Dosage: 2 DF, QD
     Route: 048

REACTIONS (16)
  - Injection site infection [Recovered/Resolved]
  - Scoliosis [Unknown]
  - Pain in extremity [Not Recovered/Not Resolved]
  - Fibrosis [Unknown]
  - Fatigue [Not Recovered/Not Resolved]
  - Joint injury [Unknown]
  - Memory impairment [Not Recovered/Not Resolved]
  - Arthralgia [Not Recovered/Not Resolved]
  - Insomnia [Not Recovered/Not Resolved]
  - Chondropathy [Unknown]
  - Injection site abscess [Recovered/Resolved]
  - Depressed mood [Not Recovered/Not Resolved]
  - Spinal pain [Not Recovered/Not Resolved]
  - Fall [Unknown]
  - Cardiac disorder [Unknown]
  - Pollakiuria [Not Recovered/Not Resolved]

NARRATIVE: CASE EVENT DATE: 2013
